FAERS Safety Report 7678717-5 (Version None)
Quarter: 2011Q3

REPORT INFORMATION
  Report Type: 
  Country: None (occurrence: None)
  Receive Date: 20110811
  Receipt Date: 20110802
  Transmission Date: 20111222
  Serious: Yes (Other)
  Sender: FDA-Public Use
  Company Number: CA-ASTRAZENECA-2011SE44285

PATIENT
  Age: 51 Year
  Sex: Female

DRUGS (2)
  1. SYMBICORT [Suspect]
     Dosage: 100/6 MCG, 1 PUFF TWICE DAILY
     Route: 055
     Dates: start: 20110708, end: 20110718
  2. SYMBICORT [Suspect]
     Dosage: 100/6 MCG, 1 PUFF TWICE DAILY
     Route: 055
     Dates: start: 20110718

REACTIONS (2)
  - DYSPNOEA [None]
  - DRUG INEFFECTIVE [None]
